FAERS Safety Report 8886822 (Version 2)
Quarter: 2012Q4

REPORT INFORMATION
  Report Type: Report from Study
  Country: GB (occurrence: GB)
  Receive Date: 20121105
  Receipt Date: 20121204
  Transmission Date: 20130627
  Serious: Yes (Hospitalization)
  Sender: FDA-Public Use
  Company Number: GB-PFIZER INC-2012271616

PATIENT
  Age: 52 Year
  Sex: Female
  Weight: 68.6 kg

DRUGS (16)
  1. DOXORUBICIN [Suspect]
     Indication: DIFFUSE LARGE B-CELL LYMPHOMA
     Dosage: 85 mg, every 3 weeks
     Route: 042
     Dates: start: 20111118, end: 20120216
  2. RO5072759 [Suspect]
     Indication: DIFFUSE LARGE B-CELL LYMPHOMA
     Dosage: 250mLx4mg/mL, day 1, 8, 15 every 21 days (cycle 1), then day 1 for subsequent cycles
     Route: 042
     Dates: start: 20111101, end: 20120216
  3. CYCLOPHOSPHAMIDE [Suspect]
     Indication: DIFFUSE LARGE B-CELL LYMPHOMA
     Dosage: 1300 mg, every 3 weeks
     Route: 042
     Dates: start: 20111118, end: 20120216
  4. VINCRISTINE [Suspect]
     Indication: DIFFUSE LARGE B-CELL LYMPHOMA
     Dosage: 2 mg, every 3 weeks
     Route: 042
     Dates: start: 20111118, end: 20120216
  5. PREDNISOLONE [Suspect]
     Indication: DIFFUSE LARGE B-CELL LYMPHOMA
     Dosage: 100 mg, cyclic, day 1 and 5 every 21 days
     Route: 048
     Dates: start: 20111118, end: 20120220
  6. OMEPRAZOLE [Concomitant]
     Indication: GASTRIC PAIN
     Dosage: UNK
     Dates: start: 20100125
  7. PARACETAMOL [Concomitant]
     Indication: PAIN
     Dosage: UNK
     Dates: start: 20100925
  8. IBUPROFEN [Concomitant]
     Indication: BACK PAIN
  9. DALTEPARIN SODIUM [Concomitant]
     Indication: PROPHYLAXIS
     Dosage: UNK
     Dates: start: 20111119
  10. ALLOPURINOL [Concomitant]
     Indication: PROPHYLAXIS
     Dosage: UNK
     Dates: start: 20111209
  11. CO-TRIMOXAZOLE [Concomitant]
     Indication: PROPHYLAXIS
  12. CHLORAMPHENICOL SODIUM SUCCINATE [Concomitant]
     Indication: CONJUNCTIVITIS
     Dosage: UNK
     Dates: start: 20111201, end: 20111208
  13. CHLORPHENIRAMINE MALEATE [Concomitant]
     Indication: INFUSION RELATED REACTION
     Dosage: UNK
     Dates: start: 20111118, end: 20120419
  14. ONDANSETRON HYDROCHLORIDE [Concomitant]
     Indication: INFUSION RELATED REACTION
     Dosage: UNK
     Dates: start: 20111118, end: 20120419
  15. DOMPERIDONE [Concomitant]
     Indication: NAUSEA
     Dosage: UNK
     Dates: start: 20111118, end: 20120419
  16. SENNA [Concomitant]
     Indication: CONSTIPATION
     Dosage: UNK
     Dates: start: 20111118, end: 20120419

REACTIONS (1)
  - Lower respiratory tract infection [Recovered/Resolved]
